FAERS Safety Report 5730253-9 (Version None)
Quarter: 2008Q2

REPORT INFORMATION
  Report Type: 
  Country: None (occurrence: None)
  Receive Date: 20080502
  Receipt Date: 20080416
  Transmission Date: 20081010
  Serious: Yes (Other)
  Sender: FDA-Public Use
  Company Number: 003#1#2008-00063

PATIENT
  Sex: Female

DRUGS (1)
  1. ELANTAN-LA-50   (ISOSORBIDE MONONITRATE) [Suspect]
     Indication: DRUG USE FOR UNKNOWN INDICATION

REACTIONS (1)
  - DYSPHAGIA [None]
